FAERS Safety Report 9309308 (Version 1)
Quarter: 2013Q2

REPORT INFORMATION
  Report Type: Spontaneous
  Country: US (occurrence: US)
  Receive Date: 20130525
  Receipt Date: 20130525
  Transmission Date: 20140414
  Serious: No
  Sender: FDA-Public Use
  Company Number: US-BRISTOL-MYERS SQUIBB COMPANY-18581561

PATIENT
  Sex: Female
  Weight: 79.37 kg

DRUGS (11)
  1. BYDUREON 2MG VIAL + SYRINGE [Suspect]
     Indication: INSULIN-REQUIRING TYPE 2 DIABETES MELLITUS
     Route: 058
  2. BYETTA PEN DISPOSABLE [Suspect]
     Indication: INSULIN-REQUIRING TYPE 2 DIABETES MELLITUS
     Route: 058
  3. BYETTA PEN DISPOSABLE [Suspect]
     Indication: INSULIN-REQUIRING TYPE 2 DIABETES MELLITUS
     Route: 058
  4. BYETTA PEN DISPOSABLE [Suspect]
     Indication: INSULIN-REQUIRING TYPE 2 DIABETES MELLITUS
     Route: 058
  5. EXENATIDE 5MCG PEN, DISPOSABLE DEVICE [Suspect]
  6. EXENATIDE 10MCG PEN, DISPOSABLE DEVICE [Concomitant]
  7. LANTUS [Concomitant]
     Indication: INSULIN-REQUIRING TYPE 2 DIABETES MELLITUS
     Route: 058
  8. ACTOPLUS MET [Concomitant]
     Indication: INSULIN-REQUIRING TYPE 2 DIABETES MELLITUS
     Route: 048
  9. LIPITOR [Concomitant]
     Indication: BLOOD CHOLESTEROL
     Route: 048
  10. BABY ASPIRIN [Concomitant]
     Route: 048
  11. COMBINATIONS OF VITAMINS [Concomitant]

REACTIONS (8)
  - Heart rate increased [Not Recovered/Not Resolved]
  - Ear discomfort [Not Recovered/Not Resolved]
  - Injection site nodule [Not Recovered/Not Resolved]
  - Nausea [Not Recovered/Not Resolved]
  - Decreased appetite [Unknown]
  - Blood glucose decreased [Not Recovered/Not Resolved]
  - Off label use [Not Recovered/Not Resolved]
  - Intentional drug misuse [Recovered/Resolved]
